FAERS Safety Report 12597410 (Version 1)
Quarter: 2016Q3

REPORT INFORMATION
  Report Type: Spontaneous
  Country: GB (occurrence: GB)
  Receive Date: 20160727
  Receipt Date: 20160727
  Transmission Date: 20161109
  Serious: Yes (Other)
  Sender: FDA-Public Use
  Company Number: GB-WATSON-2016-15958

PATIENT

DRUGS (1)
  1. SERTRALINE [Suspect]
     Active Substance: SERTRALINE HYDROCHLORIDE
     Indication: DEPRESSION
     Dosage: UNK
     Route: 048

REACTIONS (12)
  - Drug ineffective [Unknown]
  - Fatigue [Unknown]
  - Alopecia [Unknown]
  - Pain in jaw [Unknown]
  - Disturbance in attention [Unknown]
  - Irritable bowel syndrome [Unknown]
  - Depressed mood [Unknown]
  - Blister [Unknown]
  - Anxiety [Unknown]
  - Hyperhidrosis [Unknown]
  - Dry skin [Unknown]
  - Dry mouth [Unknown]
